FAERS Safety Report 7064256-1 (Version None)
Quarter: 2010Q4

REPORT INFORMATION
  Report Type: 
  Country: None (occurrence: None)
  Receive Date: 20101027
  Receipt Date: 20101015
  Transmission Date: 20110411
  Serious: Yes (Hospitalization)
  Sender: FDA-Public Use
  Company Number: JP-SANOFI-AVENTIS-2010SA063062

PATIENT

DRUGS (6)
  1. ELPLAT [Suspect]
     Indication: LARGE INTESTINE CARCINOMA
     Route: 041
  2. ELPLAT [Suspect]
     Route: 041
     Dates: start: 20100924, end: 20100924
  3. FLUOROURACIL [Suspect]
     Indication: LARGE INTESTINE CARCINOMA
     Route: 042
  4. FLUOROURACIL [Suspect]
     Route: 042
     Dates: start: 20100924, end: 20100924
  5. AVASTIN [Suspect]
     Indication: LARGE INTESTINE CARCINOMA
     Route: 042
  6. AVASTIN [Suspect]
     Route: 042
     Dates: start: 20100924, end: 20100924

REACTIONS (3)
  - DUODENAL PERFORATION [None]
  - GASTRIC PERFORATION [None]
  - PERITONITIS [None]
